FAERS Safety Report 5867965-2 (Version None)
Quarter: 2008Q3

REPORT INFORMATION
  Report Type: 
  Country: None (occurrence: None)
  Receive Date: 20080902
  Receipt Date: 20080826
  Transmission Date: 20090109
  Serious: Yes (Hospitalization)
  Sender: FDA-Public Use
  Company Number: FR-BOEHRINGER INGELHEIM GMBH, GERMANY-2008-FF-00607FF

PATIENT
  Sex: Female

DRUGS (8)
  1. CATAPRES [Suspect]
     Route: 048
  2. FOSAVANCE [Concomitant]
  3. TRANXENE [Concomitant]
     Route: 048
     Dates: end: 20080619
  4. DAFLON [Concomitant]
     Route: 048
     Dates: end: 20080619
  5. LODOZ [Concomitant]
     Dosage: 10MG/6.25MG DAILY
     Route: 048
  6. TRIVASTAL [Concomitant]
     Route: 048
  7. SEROPRAM [Concomitant]
     Route: 048
  8. ZOLPIDEM [Concomitant]
     Route: 048

REACTIONS (1)
  - PEMPHIGOID [None]
